FAERS Safety Report 9728106 (Version 2)
Quarter: 2014Q1

REPORT INFORMATION
  Report Type: Spontaneous
  Country: FR (occurrence: FR)
  Receive Date: 20131204
  Receipt Date: 20140125
  Transmission Date: 20141002
  Serious: Yes (Hospitalization)
  Sender: FDA-Public Use
  Company Number: FR-ROCHE-1310746

PATIENT
  Age: 29 Year
  Sex: Female
  Weight: 103 kg

DRUGS (2)
  1. ZELBORAF [Suspect]
     Indication: MALIGNANT MELANOMA
     Route: 048
     Dates: start: 20131108, end: 20131117
  2. GDC-0973 [Suspect]
     Indication: MALIGNANT MELANOMA
     Route: 065
     Dates: start: 20131108, end: 20131117

REACTIONS (1)
  - Drug reaction with eosinophilia and systemic symptoms [Not Recovered/Not Resolved]
